FAERS Safety Report 10016349 (Version 2)
Quarter: 2014Q2

REPORT INFORMATION
  Report Type: Spontaneous
  Country: US (occurrence: US)
  Receive Date: 20140317
  Receipt Date: 20140424
  Transmission Date: 20141212
  Serious: No
  Sender: FDA-Public Use
  Company Number: US-PFIZER INC-2014076857

PATIENT
  Age: 55 Year
  Sex: Female

DRUGS (23)
  1. LYRICA [Suspect]
     Indication: HEADACHE
     Dosage: 100 MG, 2X/DAY
     Route: 048
     Dates: start: 20140304
  2. LYRICA [Suspect]
     Dosage: 75 MG, 2X/DAY
     Route: 048
  3. LYRICA [Suspect]
     Dosage: 50 MG, 2X/DAY
     Route: 048
  4. LYRICA [Suspect]
     Dosage: 125 MG (50 MG IN THE MORNING AND 75 MG IN THE EVENING)
  5. TORADOL [Concomitant]
     Dosage: 10 MG 1 TAB Q 6 HOURS
     Route: 048
     Dates: end: 20140325
  6. INDOMETHACIN [Concomitant]
     Dosage: 25 MG 1 CAPSULE WITH FOOD TWICE A DAY,30 DAY(S)
     Route: 048
  7. FROVATRIPTAN SUCCINATE [Concomitant]
     Dosage: 2.5 MG 1 TABLET AS NEEDED ONE TIME ORALLY ONCE A DAY
     Route: 048
  8. TOPAMAX [Concomitant]
     Dosage: 150 MG,1.5 TABLET 2 TIMES A DAY
     Route: 048
  9. PHENOBARBITAL [Concomitant]
     Dosage: 30 MG, 2 TABLET ORALLY QHS
     Route: 048
  10. ONDANSETRON HYDROCHLORIDE [Concomitant]
     Dosage: 4 MG, UNK
     Route: 048
  11. CYMBALTA [Concomitant]
     Dosage: 60 BID
  12. FLEXERIL [Concomitant]
     Dosage: 10 MG, AT BED
     Route: 048
  13. XYZAL [Concomitant]
     Dosage: 5 MG, 1 TABLET IN THE EVENING ORALLY ONCE A DAY
     Route: 048
  14. PREMPRO [Concomitant]
     Dosage: 0.625MG ESTROGENS CONJUGATED -2.5MG MEDROXYPROGESTERONE ACETATE 1 TABLET ORALLY ONCE A DAY
     Route: 048
  15. PHENERGAN [Concomitant]
     Dosage: UNK
  16. PERCOCET [Concomitant]
     Dosage: 5MG OXYCODONE, 325 MG PARACETAMOL 2 TABLET AS NEEDED EVERY 6 HRS
     Route: 048
  17. FIORICET [Concomitant]
     Dosage: BUTALBITAL 50MG, 325MG PARACETAMOL, 40 MG CAFFEINE 1 TABLET AS NEEDED EVERY 4 HRS
     Route: 048
  18. AMBIEN [Concomitant]
     Dosage: 10 MG 1 TABLET AT BEDTIME AS NEEDED ONCE A DAY
     Route: 048
  19. ALBUTEROL SULFATE HFA [Concomitant]
     Dosage: 108 (90 BASE) MCG/ACT 2 PUFFS AS NEEDED INHALATION EVERY 4 HRS
     Route: 055
  20. VITAMIN D [Concomitant]
     Dosage: 400 UNIT, UNK
     Route: 048
  21. LIDOCAINE [Concomitant]
     Dosage: 5 % 1 PATCH TO INTACT SKIN REMOVE AFTER 12 HOURS EXTERNALLY ONCE A DAY
     Route: 061
  22. MONTELUKAST SODIUM [Concomitant]
     Dosage: 10 MG, 1 TABLET IN THE EVENING ONCE A DAY
     Route: 048
  23. NASONEX [Concomitant]
     Dosage: 50 MCG/ ACT 2 SPRAYS IN EACH NOSTRIL NASALLY TWICE A DAY
     Route: 045

REACTIONS (3)
  - Off label use [Unknown]
  - Muscle spasms [Recovering/Resolving]
  - Musculoskeletal stiffness [Recovering/Resolving]
